FAERS Safety Report 12740443 (Version 1)
Quarter: 2016Q3

REPORT INFORMATION
  Report Type: Spontaneous
  Country: US (occurrence: US)
  Receive Date: 20160913
  Receipt Date: 20160913
  Transmission Date: 20161109
  Serious: Yes (Other)
  Sender: FDA-Public Use
  Company Number: US-TEVA-692120USA

PATIENT
  Age: 32 Year
  Sex: Female

DRUGS (4)
  1. COPAXONE [Suspect]
     Active Substance: GLATIRAMER ACETATE
     Indication: MULTIPLE SCLEROSIS
     Route: 058
     Dates: start: 20160809
  2. IBUPROFEN. [Concomitant]
     Active Substance: IBUPROFEN
  3. TOPAMAX [Concomitant]
     Active Substance: TOPIRAMATE
  4. ALEVE [Concomitant]
     Active Substance: NAPROXEN SODIUM

REACTIONS (2)
  - Multiple sclerosis relapse [Unknown]
  - Injection site reaction [Unknown]

NARRATIVE: CASE EVENT DATE: 20160824
